FAERS Safety Report 6870791-9 (Version None)
Quarter: 2010Q3

REPORT INFORMATION
  Report Type: 
  Country: None (occurrence: None)
  Receive Date: 20100723
  Receipt Date: 20100623
  Transmission Date: 20110219
  Serious: Yes (Other)
  Sender: FDA-Public Use
  Company Number: PK-JNJFOC-20100607153

PATIENT
  Sex: Male

DRUGS (2)
  1. IMODIUM [Suspect]
     Indication: DIARRHOEA
     Dosage: 2 CAPSULES TWICE A DAY
     Route: 065
  2. FLAGYL [Concomitant]
     Indication: DIARRHOEA

REACTIONS (1)
  - GASTROINTESTINAL OBSTRUCTION [None]
